FAERS Safety Report 7054629-5 (Version None)
Quarter: 2010Q4

REPORT INFORMATION
  Report Type: 
  Country: None (occurrence: None)
  Receive Date: 20101020
  Receipt Date: 20101012
  Transmission Date: 20110411
  Serious: Yes (Other)
  Sender: FDA-Public Use
  Company Number: US-PFIZER INC-2010130638

PATIENT
  Sex: Female

DRUGS (2)
  1. GEODON [Suspect]
     Dosage: UNK
  2. SEROQUEL [Suspect]
     Dosage: UNK

REACTIONS (5)
  - APHONIA [None]
  - FALL [None]
  - HYPOKINESIA [None]
  - MUSCLE RIGIDITY [None]
  - TARDIVE DYSKINESIA [None]
